FAERS Safety Report 5482824-5 (Version None)
Quarter: 2007Q4

REPORT INFORMATION
  Report Type: 
  Country: None (occurrence: None)
  Receive Date: 20071011
  Receipt Date: 20071004
  Transmission Date: 20080405
  Serious: Yes (Hospitalization, Other)
  Sender: FDA-Public Use
  Company Number: ES-PFIZER INC-2007083753

PATIENT
  Age: 65 Year
  Sex: Female

DRUGS (6)
  1. PREVENCOR [Suspect]
     Indication: HYPERCHOLESTEROLAEMIA
     Route: 048
  2. TEGRETOL [Interacting]
     Indication: EPILEPSY
     Route: 048
  3. ADALAT [Interacting]
     Indication: CREST SYNDROME
     Route: 048
  4. ZONEGRAN [Interacting]
     Indication: EPILEPSY
     Route: 048
     Dates: start: 20070312, end: 20070614
  5. COLCHICINE ^HOUDE^ [Interacting]
     Indication: CREST SYNDROME
     Route: 048
  6. KEPPRA [Interacting]
     Indication: EPILEPSY
     Route: 048

REACTIONS (3)
  - CREST SYNDROME [None]
  - DRUG INTERACTION [None]
  - NEUTROPENIA [None]
